FAERS Safety Report 9165379 (Version 1)
Quarter: 2013Q1

REPORT INFORMATION
  Report Type: Spontaneous
  Country: US (occurrence: US)
  Receive Date: 20130315
  Receipt Date: 20130315
  Transmission Date: 20140127
  Serious: Yes (Hospitalization, Other)
  Sender: FDA-Public Use
  Company Number: US-BRISTOL-MYERS SQUIBB COMPANY-17458530

PATIENT
  Age: 82 Year
  Sex: Male

DRUGS (14)
  1. ETOPOSIDE [Suspect]
     Indication: B-CELL LYMPHOMA
  2. PREDNISONE [Suspect]
     Indication: B-CELL LYMPHOMA
  3. RITUXAN [Suspect]
     Indication: B-CELL LYMPHOMA
  4. CYTOXAN LYOPHILIZED [Suspect]
     Indication: B-CELL LYMPHOMA
  5. MATULANE [Suspect]
     Indication: B-CELL LYMPHOMA
     Dosage: 50MG CAPS
     Route: 048
     Dates: start: 20121211
  6. FLUCONAZOLE [Suspect]
  7. ALLOPURINOL [Concomitant]
  8. FUROSEMIDE [Concomitant]
  9. LISINOPRIL [Concomitant]
  10. ATIVAN [Concomitant]
  11. POTASSIUM [Concomitant]
  12. COMPAZINE [Concomitant]
  13. TOPROL [Concomitant]
  14. ZOFRAN [Concomitant]

REACTIONS (7)
  - Pancreatitis [Unknown]
  - Cardiac failure congestive [Unknown]
  - Hypoalbuminaemia [Unknown]
  - Renal failure chronic [Unknown]
  - Malnutrition [Unknown]
  - Leukocytosis [Unknown]
  - Anaemia [Unknown]
